FAERS Safety Report 26147757 (Version 1)
Quarter: 2025Q4

REPORT INFORMATION
  Report Type: Spontaneous
  Country: CA (occurrence: CA)
  Receive Date: 20251211
  Receipt Date: 20251211
  Transmission Date: 20260117
  Serious: Yes (Death, Other)
  Sender: Haleon PLC
  Company Number: CA-HALEON-2278566

PATIENT
  Age: 58 Year
  Sex: Female

DRUGS (196)
  1. FLUTICASONE PROPIONATE [Suspect]
     Active Substance: FLUTICASONE PROPIONATE
     Indication: Product used for unknown indication
     Dosage: ROUTE: UNKNOWN
  2. FLUTICASONE PROPIONATE [Suspect]
     Active Substance: FLUTICASONE PROPIONATE
     Dosage: ROUTE: UNKNOWN
  3. FLUTICASONE PROPIONATE [Suspect]
     Active Substance: FLUTICASONE PROPIONATE
     Dosage: ROUTE: UNKNOWN, 2 EVERY 1 DAYS
  4. FLUTICASONE PROPIONATE [Suspect]
     Active Substance: FLUTICASONE PROPIONATE
     Dosage: ROUTE: UNKNOWN, 2 EVERY 1 DAYS
  5. FLUTICASONE PROPIONATE [Suspect]
     Active Substance: FLUTICASONE PROPIONATE
     Dosage: ROUTE: UNKNOWN
  6. ABACAVIR [Suspect]
     Active Substance: ABACAVIR
     Indication: Product used for unknown indication
     Dosage: ROUTE: UNKNOWN
  7. ABACAVIR SULFATE\DOLUTEGRAVIR SODIUM\LAMIVUDINE [Suspect]
     Active Substance: ABACAVIR SULFATE\DOLUTEGRAVIR SODIUM\LAMIVUDINE
     Indication: Product used for unknown indication
     Dosage: ROUTE: UNKNOWN
  8. ABACAVIR SULFATE\LAMIVUDINE [Suspect]
     Active Substance: ABACAVIR SULFATE\LAMIVUDINE
     Indication: Product used for unknown indication
     Dosage: ROUTE: UNKNOWN
  9. ACETAMINOPHEN AND CODEINE [Suspect]
     Active Substance: ACETAMINOPHEN\CODEINE PHOSPHATE
     Indication: Product used for unknown indication
     Dosage: DOSAGE FORM: ELIXIR, ROUTE: UNKNOWN
  10. ACETAMINOPHEN AND CODEINE [Suspect]
     Active Substance: ACETAMINOPHEN\CODEINE PHOSPHATE
     Indication: Product used for unknown indication
     Dosage: ROUTE: UNKNOWN
  11. ACETAMINOPHEN\OXYCODONE HYDROCHLORIDE [Suspect]
     Active Substance: ACETAMINOPHEN\OXYCODONE HYDROCHLORIDE
     Indication: Product used for unknown indication
     Dosage: ROUTE: UNKNOWN
  12. ACTEMRA [Suspect]
     Active Substance: TOCILIZUMAB
     Indication: Rheumatoid arthritis
     Dosage: 2 EVERY 1 DAYS
  13. ACTEMRA [Suspect]
     Active Substance: TOCILIZUMAB
     Indication: Rheumatoid arthritis
     Dosage: DOSAGE FORM: SOLUTION FOR INJECTION IN PRE-FILLED SYRINGE, ROUTE: UNKNOWN
  14. ACTEMRA [Suspect]
     Active Substance: TOCILIZUMAB
     Dosage: DOSAGE FORM: SOLUTION FOR INJECTION IN PRE-FILLED SYRINGE
  15. ACTEMRA [Suspect]
     Active Substance: TOCILIZUMAB
     Dosage: DOSAGE FORM: SOLUTION FOR INJECTION IN PRE-FILLED SYRINGE
  16. ACTEMRA [Suspect]
     Active Substance: TOCILIZUMAB
     Dosage: DOSAGE FORM: SOLUTION FOR INJECTION IN PRE-FILLED SYRINGE
  17. ACTEMRA [Suspect]
     Active Substance: TOCILIZUMAB
     Dosage: DOSAGE FORM: SOLUTION FOR INJECTION IN PRE-FILLED SYRINGE
  18. ACTEMRA [Suspect]
     Active Substance: TOCILIZUMAB
     Dosage: DOSAGE FORM: SOLUTION FOR INJECTION IN PRE-FILLED SYRINGE
  19. ACTEMRA [Suspect]
     Active Substance: TOCILIZUMAB
     Dosage: DOSAGE FORM: SOLUTION FOR INJECTION IN PRE-FILLED SYRINGE
  20. ACTEMRA [Suspect]
     Active Substance: TOCILIZUMAB
     Dosage: DOSAGE FORM: SOLUTION FOR INJECTION IN PRE-FILLED SYRINGE
  21. ACTEMRA [Suspect]
     Active Substance: TOCILIZUMAB
     Dosage: DOSAGE FORM: SOLUTION FOR INJECTION IN PRE-FILLED SYRINGE, 2 EVERY 1 DAYS
  22. ACTEMRA [Suspect]
     Active Substance: TOCILIZUMAB
     Dosage: DOSAGE FORM: SOLUTION FOR INJECTION IN PRE-FILLED SYRINGE, 2 EVERY 1 DAYS
  23. ACTEMRA [Suspect]
     Active Substance: TOCILIZUMAB
     Dosage: DOSAGE FORM: SOLUTION FOR INJECTION IN PRE-FILLED SYRINGE
  24. ACTEMRA [Suspect]
     Active Substance: TOCILIZUMAB
     Dosage: DOSAGE FORM: SOLUTION FOR INJECTION IN PRE-FILLED SYRINGE
  25. ACTEMRA [Suspect]
     Active Substance: TOCILIZUMAB
     Dosage: DOSAGE FORM: SOLUTION FOR INJECTION IN PRE-FILLED SYRINGE
  26. ACTEMRA [Suspect]
     Active Substance: TOCILIZUMAB
     Dosage: DOSAGE FORM: SOLUTION FOR INJECTION IN PRE-FILLED SYRINGE, 2 EVERY 1 DAYS
  27. ACTEMRA [Suspect]
     Active Substance: TOCILIZUMAB
     Dosage: DOSAGE FORM: SOLUTION FOR INJECTION IN PRE-FILLED SYRINGE
  28. ACTEMRA [Suspect]
     Active Substance: TOCILIZUMAB
     Dosage: DOSAGE FORM: SOLUTION FOR INJECTION IN PRE-FILLED SYRINGE, ROUTE: UNKNOWN
  29. ADVAIR HFA [Suspect]
     Active Substance: FLUTICASONE PROPIONATE\SALMETEROL XINAFOATE
     Indication: Rheumatoid arthritis
     Dosage: ROUTE: UNKNOWN, 2 EVERY 1 DAYS
  30. ADVAIR HFA [Suspect]
     Active Substance: FLUTICASONE PROPIONATE\SALMETEROL XINAFOATE
     Dosage: ROUTE: UNKNOWN
  31. ADVAIR HFA [Suspect]
     Active Substance: FLUTICASONE PROPIONATE\SALMETEROL XINAFOATE
     Dosage: ROUTE: UNKNOWN
  32. ADVAIR HFA [Suspect]
     Active Substance: FLUTICASONE PROPIONATE\SALMETEROL XINAFOATE
     Dosage: ROUTE: UNKNOWN
  33. ADVAIR HFA [Suspect]
     Active Substance: FLUTICASONE PROPIONATE\SALMETEROL XINAFOATE
     Dosage: ROUTE: UNKNOWN
  34. ADVAIR HFA [Suspect]
     Active Substance: FLUTICASONE PROPIONATE\SALMETEROL XINAFOATE
     Dosage: ROUTE: UNKNOWN
  35. ADVAIR HFA [Suspect]
     Active Substance: FLUTICASONE PROPIONATE\SALMETEROL XINAFOATE
     Dosage: ROUTE: UNKNOWN, 2 EVERY 1 DAYS
  36. ADVAIR HFA [Suspect]
     Active Substance: FLUTICASONE PROPIONATE\SALMETEROL XINAFOATE
     Dosage: ROUTE: UNKNOWN, 2 EVERY 1 DAYS
  37. ADVAIR HFA [Suspect]
     Active Substance: FLUTICASONE PROPIONATE\SALMETEROL XINAFOATE
     Dosage: ROUTE: UNKNOWN
  38. ADVAIR HFA [Suspect]
     Active Substance: FLUTICASONE PROPIONATE\SALMETEROL XINAFOATE
     Dosage: ROUTE: UNKNOWN
  39. ADVAIR HFA [Suspect]
     Active Substance: FLUTICASONE PROPIONATE\SALMETEROL XINAFOATE
     Dosage: ROUTE: UNKNOWN
  40. ADVAIR HFA [Suspect]
     Active Substance: FLUTICASONE PROPIONATE\SALMETEROL XINAFOATE
     Dosage: ROUTE: UNKNOWN
  41. ADVAIR HFA [Suspect]
     Active Substance: FLUTICASONE PROPIONATE\SALMETEROL XINAFOATE
     Dosage: ROUTE: UNKNOWN
  42. ADVAIR HFA [Suspect]
     Active Substance: FLUTICASONE PROPIONATE\SALMETEROL XINAFOATE
     Dosage: ROUTE: UNKNOWN
  43. ADVAIR HFA [Suspect]
     Active Substance: FLUTICASONE PROPIONATE\SALMETEROL XINAFOATE
     Dosage: ROUTE: UNKNOWN, 2 EVERY 1 DAYS
  44. ADVAIR HFA [Suspect]
     Active Substance: FLUTICASONE PROPIONATE\SALMETEROL XINAFOATE
     Dosage: ROUTE: UNKNOWN, 2 EVERY 1 DAYS
  45. ADVAIR HFA [Suspect]
     Active Substance: FLUTICASONE PROPIONATE\SALMETEROL XINAFOATE
     Dosage: ROUTE: UNKNOWN, 2 EVERY 1 DAYS
  46. ADVAIR HFA [Suspect]
     Active Substance: FLUTICASONE PROPIONATE\SALMETEROL XINAFOATE
     Dosage: ROUTE: UNKNOWN, 2 EVERY 1 DAYS
  47. ALBUTEROL [Suspect]
     Active Substance: ALBUTEROL
     Indication: Product used for unknown indication
     Dosage: ROUTE: UNKNOWN
  48. ALPRAZOLAM [Suspect]
     Active Substance: ALPRAZOLAM
     Indication: Product used for unknown indication
  49. ALPRAZOLAM [Suspect]
     Active Substance: ALPRAZOLAM
  50. ALPRAZOLAM [Suspect]
     Active Substance: ALPRAZOLAM
     Dosage: ROUTE: UNKNOWN
  51. ALPRAZOLAM [Suspect]
     Active Substance: ALPRAZOLAM
     Dosage: ROUTE: UNKNOWN
  52. CALCIUM ASCORBATE [Suspect]
     Active Substance: CALCIUM ASCORBATE
     Indication: Product used for unknown indication
     Dosage: ROUTE: UNKNOWN
  53. CATAPRES [Suspect]
     Active Substance: CLONIDINE HYDROCHLORIDE
     Indication: Eczema
     Dosage: ROUTE: UNKNOWN
  54. CHLORMEZANONE [Suspect]
     Active Substance: CHLORMEZANONE
     Indication: Rheumatoid arthritis
     Dosage: ROUTE: UNKNOWN
  55. CHLORMEZANONE [Suspect]
     Active Substance: CHLORMEZANONE
     Indication: Rheumatoid arthritis
     Dosage: ROUTE: UNKNOWN
  56. CITALOPRAM HYDROCHLORIDE [Suspect]
     Active Substance: CITALOPRAM HYDROCHLORIDE
     Indication: Product used for unknown indication
     Dosage: ROUTE: UNKNOWN
  57. CITALOPRAM HYDROCHLORIDE [Suspect]
     Active Substance: CITALOPRAM HYDROCHLORIDE
     Dosage: ROUTE: UNKNOWN
  58. CITALOPRAM HYDROCHLORIDE [Suspect]
     Active Substance: CITALOPRAM HYDROCHLORIDE
     Dosage: ROUTE: UNKNOWN
  59. CODEINE [Suspect]
     Active Substance: CODEINE
     Indication: Product used for unknown indication
     Dosage: ROUTE: UNKNOWN
  60. CODEINE PHOSPHATE\GUAIFENESIN\PHENIRAMINE MALEATE [Suspect]
     Active Substance: CODEINE PHOSPHATE\GUAIFENESIN\PHENIRAMINE MALEATE
     Indication: Product used for unknown indication
     Dosage: ROUTE: UNKNOWN
  61. CYCLOBENZAPRINE HYDROCHLORIDE [Suspect]
     Active Substance: CYCLOBENZAPRINE HYDROCHLORIDE
     Indication: Eczema
     Dosage: ROUTE: UNKNOWN
  62. CYCLOBENZAPRINE HYDROCHLORIDE [Suspect]
     Active Substance: CYCLOBENZAPRINE HYDROCHLORIDE
     Dosage: ROUTE: UNKNOWN
  63. CYCLOBENZAPRINE HYDROCHLORIDE [Suspect]
     Active Substance: CYCLOBENZAPRINE HYDROCHLORIDE
     Dosage: ROUTE: OPHTHALMIC
  64. CYCLOPENTAMINE HYDROCHLORIDE [Suspect]
     Active Substance: CYCLOPENTAMINE HYDROCHLORIDE
     Indication: Eczema
     Dosage: ROUTE: UNKNOWN
  65. DEMEROL [Suspect]
     Active Substance: MEPERIDINE HYDROCHLORIDE
     Indication: Rheumatoid arthritis
     Dosage: ROUTE: UNKNOWN
  66. DICLOFENAC SODIUM [Suspect]
     Active Substance: DICLOFENAC SODIUM
     Indication: Arthralgia
     Dosage: ROUTE: UNKNOWN
  67. DICLOFENAC SODIUM [Suspect]
     Active Substance: DICLOFENAC SODIUM
     Indication: Arthralgia
     Dosage: ROUTE: UNKNOWN
  68. DICLOFENAC SODIUM [Suspect]
     Active Substance: DICLOFENAC SODIUM
     Dosage: ROUTE: UNKNOWN
  69. DICLOFENAC SODIUM [Suspect]
     Active Substance: DICLOFENAC SODIUM
     Dosage: ROUTE: UNKNOWN
  70. XELJANZ [Suspect]
     Active Substance: TOFACITINIB CITRATE
     Indication: Rheumatoid arthritis
  71. XELJANZ [Suspect]
     Active Substance: TOFACITINIB CITRATE
     Indication: Herpes zoster
  72. XELJANZ [Suspect]
     Active Substance: TOFACITINIB CITRATE
     Indication: Rheumatoid arthritis
  73. XELJANZ [Suspect]
     Active Substance: TOFACITINIB CITRATE
     Indication: Herpes zoster
     Dosage: ROUTE: UNKNOWN
  74. ZOPICLONE [Suspect]
     Active Substance: ZOPICLONE
     Indication: Product used for unknown indication
     Dosage: ROUTE: UNKNOWN
  75. DOLUTEGRAVIR SODIUM [Suspect]
     Active Substance: DOLUTEGRAVIR SODIUM
     Indication: Product used for unknown indication
     Dosage: ROUTE: UNKNOWN
  76. ENBREL [Suspect]
     Active Substance: ETANERCEPT
     Indication: Rheumatoid arthritis
     Dosage: ROUTE: UNKNOWN
  77. FLUCONAZOLE [Suspect]
     Active Substance: FLUCONAZOLE
     Indication: Product used for unknown indication
     Dosage: ROUTE: UNKNOWN
  78. FLUTICASONE PROPIONATE\SALMETEROL XINAFOATE [Suspect]
     Active Substance: FLUTICASONE PROPIONATE\SALMETEROL XINAFOATE
     Indication: Product used for unknown indication
     Dosage: ROUTE: UNKNOWN, 2 EVERY 1 DAYS
  79. FLUTICASONE PROPIONATE\SALMETEROL XINAFOATE [Suspect]
     Active Substance: FLUTICASONE PROPIONATE\SALMETEROL XINAFOATE
     Dosage: ROUTE: UNKNOWN
  80. FUROSEMIDE [Suspect]
     Active Substance: FUROSEMIDE
     Indication: Product used for unknown indication
     Dosage: ROUTE: UNKNOWN
  81. GABAPENTIN [Suspect]
     Active Substance: GABAPENTIN
     Indication: Product used for unknown indication
     Dosage: ROUTE: UNKNOWN
  82. HUMIRA [Suspect]
     Active Substance: ADALIMUMAB
     Indication: Product used for unknown indication
     Dosage: DOSAGE FORM: SOLUTION SUBCUTANEOUS, ROUTE: UNKNOWN
  83. HUMIRA [Suspect]
     Active Substance: ADALIMUMAB
     Indication: Product used for unknown indication
  84. HYDROMORPHONE HYDROCHLORIDE [Suspect]
     Active Substance: HYDROMORPHONE HYDROCHLORIDE
     Indication: Migraine
     Dosage: ROUTE: UNKNOWN
  85. SCOPOLAMINE [Suspect]
     Active Substance: SCOPOLAMINE
     Indication: Product used for unknown indication
     Dosage: ROUTE: UNKNOWN
  86. SCOPOLAMINE [Suspect]
     Active Substance: SCOPOLAMINE
     Dosage: ROUTE: UNKNOWN
  87. SCOPOLAMINE [Suspect]
     Active Substance: SCOPOLAMINE
     Dosage: ROUTE: UNKNOWN
  88. SCOPOLAMINE [Suspect]
     Active Substance: SCOPOLAMINE
     Dosage: ROUTE: UNKNOWN
  89. INFLIXIMAB [Suspect]
     Active Substance: INFLIXIMAB
     Indication: Product used for unknown indication
     Dosage: ROUTE: UNKNOWN
  90. HERBALS\PLANTAGO OVATA SEED [Suspect]
     Active Substance: HERBALS\PLANTAGO OVATA SEED
     Indication: Product used for unknown indication
     Dosage: ROUTE: UNKNOWN
  91. HYDROMORPHONE HYDROCHLORIDE [Suspect]
     Active Substance: HYDROMORPHONE HYDROCHLORIDE
     Indication: Product used for unknown indication
     Dosage: DOSAGE FORM: PROLONGED-RELEASE TABLET, ROUTE: UNKNOWN
  92. HYDROMORPHONE HYDROCHLORIDE [Suspect]
     Active Substance: HYDROMORPHONE HYDROCHLORIDE
     Indication: Product used for unknown indication
     Dosage: DOSAGE FORM: TABLET (EXTENDED-RELEASE), ROUTE: UNKNOWN
  93. KETOPROFEN [Suspect]
     Active Substance: KETOPROFEN
     Indication: Product used for unknown indication
     Dosage: ROUTE: UNKNOWN
  94. LAMIVUDINE [Suspect]
     Active Substance: LAMIVUDINE
     Indication: Product used for unknown indication
     Dosage: ROUTE: UNKNOWN
  95. LYRICA [Suspect]
     Active Substance: PREGABALIN
     Indication: Pain
     Dosage: ROUTE: UNKNOWN
  96. LYRICA [Suspect]
     Active Substance: PREGABALIN
     Indication: Herpes zoster
     Dosage: ROUTE: UNKNOWN
  97. METHYLPREDNISOLONE [Suspect]
     Active Substance: METHYLPREDNISOLONE
     Indication: Product used for unknown indication
     Dosage: ROUTE: UNKNOWN
  98. METHYLPREDNISOLONE [Suspect]
     Active Substance: METHYLPREDNISOLONE
     Dosage: ROUTE: UNKNOWN
  99. METHYLPREDNISOLONE [Suspect]
     Active Substance: METHYLPREDNISOLONE
     Dosage: ROUTE: UNKNOWN
  100. METHYLPREDNISOLONE [Suspect]
     Active Substance: METHYLPREDNISOLONE
     Dosage: ROUTE: UNKNOWN
  101. METHYLPREDNISOLONE [Suspect]
     Active Substance: METHYLPREDNISOLONE
     Dosage: ROUTE: UNKNOWN
  102. METHYLPREDNISOLONE [Suspect]
     Active Substance: METHYLPREDNISOLONE
     Dosage: ROUTE: UNKNOWN
  103. METHYLPREDNISOLONE [Suspect]
     Active Substance: METHYLPREDNISOLONE
     Dosage: ROUTE: UNKNOWN
  104. METHYLPREDNISOLONE [Suspect]
     Active Substance: METHYLPREDNISOLONE
     Dosage: ROUTE: UNKNOWN
  105. METHYLPREDNISOLONE [Suspect]
     Active Substance: METHYLPREDNISOLONE
     Dosage: ROUTE: UNKNOWN
  106. METHYLPREDNISOLONE [Suspect]
     Active Substance: METHYLPREDNISOLONE
     Dosage: ROUTE: UNKNOWN
  107. METHYLPREDNISOLONE [Suspect]
     Active Substance: METHYLPREDNISOLONE
     Dosage: ROUTE: UNKNOWN
  108. MONTELUKAST SODIUM [Suspect]
     Active Substance: MONTELUKAST SODIUM
     Indication: Product used for unknown indication
  109. MORPHINE [Suspect]
     Active Substance: MORPHINE
     Indication: Migraine
     Dosage: ROUTE: UNKNOWN
  110. MORPHINE [Suspect]
     Active Substance: MORPHINE
     Indication: Migraine
  111. MORPHINE [Suspect]
     Active Substance: MORPHINE
  112. MORPHINE [Suspect]
     Active Substance: MORPHINE
  113. MOXIFLOXACIN HYDROCHLORIDE [Suspect]
     Active Substance: MOXIFLOXACIN HYDROCHLORIDE
     Indication: Product used for unknown indication
  114. MOXIFLOXACIN HYDROCHLORIDE [Suspect]
     Active Substance: MOXIFLOXACIN HYDROCHLORIDE
     Dosage: ROUTE: UNKNOWN
  115. NORTRIPTYLINE HYDROCHLORIDE [Suspect]
     Active Substance: NORTRIPTYLINE HYDROCHLORIDE
     Indication: Product used for unknown indication
  116. NORTRIPTYLINE HYDROCHLORIDE [Suspect]
     Active Substance: NORTRIPTYLINE HYDROCHLORIDE
     Dosage: ROUTE: UNKNOWN
  117. NORTRIPTYLINE HYDROCHLORIDE [Suspect]
     Active Substance: NORTRIPTYLINE HYDROCHLORIDE
     Indication: Product used for unknown indication
     Dosage: ROUTE: UNKNOWN
  118. ONDANSETRON HYDROCHLORIDE [Suspect]
     Active Substance: ONDANSETRON HYDROCHLORIDE
     Indication: Product used for unknown indication
     Dosage: ROUTE: UNKNOWN
  119. ORENCIA [Suspect]
     Active Substance: ABATACEPT
     Indication: Product used for unknown indication
     Dosage: ROUTE: UNKNOWN
  120. ORENCIA [Suspect]
     Active Substance: ABATACEPT
     Dosage: ROUTE: UNKNOWN
  121. ORENCIA [Suspect]
     Active Substance: ABATACEPT
     Dosage: ROUTE: UNKNOWN
  122. ORENCIA [Suspect]
     Active Substance: ABATACEPT
     Dosage: ROUTE: UNKNOWN
  123. ORENCIA [Suspect]
     Active Substance: ABATACEPT
  124. OXYCODONE HYDROCHLORIDE [Suspect]
     Active Substance: OXYCODONE HYDROCHLORIDE
     Indication: Product used for unknown indication
     Dosage: ROUTE: UNKNOWN
  125. HERBALS\PLANTAGO INDICA WHOLE [Suspect]
     Active Substance: HERBALS\PLANTAGO INDICA WHOLE
     Indication: Product used for unknown indication
     Dosage: ROUTE: UNKNOWN
  126. HERBALS\PLANTAGO OVATA LEAF [Suspect]
     Active Substance: HERBALS\PLANTAGO OVATA LEAF
     Indication: Product used for unknown indication
     Dosage: ROUTE: UNKNOWN
  127. HERBALS\PLANTAGO OVATA LEAF [Suspect]
     Active Substance: HERBALS\PLANTAGO OVATA LEAF
     Indication: Product used for unknown indication
     Dosage: ROUTE: UNKNOWN
  128. PREDNISOLONE SODIUM PHOSPHATE [Suspect]
     Active Substance: PREDNISOLONE SODIUM PHOSPHATE
     Indication: Product used for unknown indication
     Dosage: ROUTE: UNKNOWN
  129. PROGESTERONE [Suspect]
     Active Substance: PROGESTERONE
     Indication: Product used for unknown indication
  130. PROGESTERONE [Suspect]
     Active Substance: PROGESTERONE
     Indication: Product used for unknown indication
     Dosage: ROUTE: UNKNOWN
  131. PROGESTERONE [Suspect]
     Active Substance: PROGESTERONE
     Dosage: ROUTE: UNKNOWN
  132. PROGESTERONE [Suspect]
     Active Substance: PROGESTERONE
     Dosage: ROUTE: UNKNOWN
  133. PROGESTERONE [Suspect]
     Active Substance: PROGESTERONE
  134. PROGESTERONE [Suspect]
     Active Substance: PROGESTERONE
  135. PROGESTERONE [Suspect]
     Active Substance: PROGESTERONE
  136. QUETIAPINE FUMARATE [Suspect]
     Active Substance: QUETIAPINE FUMARATE
     Indication: Product used for unknown indication
  137. RANITIDINE HYDROCHLORIDE [Suspect]
     Active Substance: RANITIDINE HYDROCHLORIDE
     Indication: Product used for unknown indication
     Dosage: ROUTE: UNKNOWN
  138. RANITIDINE HYDROCHLORIDE [Suspect]
     Active Substance: RANITIDINE HYDROCHLORIDE
     Indication: Product used for unknown indication
     Dosage: ROUTE: INTRACARDIAC
  139. RANITIDINE HYDROCHLORIDE [Suspect]
     Active Substance: RANITIDINE HYDROCHLORIDE
     Dosage: ROUTE: INTRACARDIAC
  140. RANITIDINE HYDROCHLORIDE [Suspect]
     Active Substance: RANITIDINE HYDROCHLORIDE
     Dosage: ROUTE: BUCCAL
  141. RANITIDINE HYDROCHLORIDE [Suspect]
     Active Substance: RANITIDINE HYDROCHLORIDE
     Dosage: ROUTE: UNKNOWN
  142. RANITIDINE HYDROCHLORIDE [Suspect]
     Active Substance: RANITIDINE HYDROCHLORIDE
     Dosage: ROUTE: INTRACARDIAC
  143. RANITIDINE HYDROCHLORIDE [Suspect]
     Active Substance: RANITIDINE HYDROCHLORIDE
  144. RANITIDINE HYDROCHLORIDE [Suspect]
     Active Substance: RANITIDINE HYDROCHLORIDE
     Dosage: ROUTE: UNKNOWN
  145. CETIRIZINE HYDROCHLORIDE [Suspect]
     Active Substance: CETIRIZINE HYDROCHLORIDE
     Indication: Product used for unknown indication
     Dosage: ROUTE: UNKNOWN
  146. CETIRIZINE HYDROCHLORIDE [Suspect]
     Active Substance: CETIRIZINE HYDROCHLORIDE
     Indication: Product used for unknown indication
     Dosage: ROUTE: UNKNOWN
  147. CETIRIZINE HYDROCHLORIDE [Suspect]
     Active Substance: CETIRIZINE HYDROCHLORIDE
     Dosage: ROUTE: UNKNOWN
  148. CETIRIZINE HYDROCHLORIDE\PSEUDOEPHEDRINE HYDROCHLORIDE [Suspect]
     Active Substance: CETIRIZINE HYDROCHLORIDE\PSEUDOEPHEDRINE HYDROCHLORIDE
     Indication: Product used for unknown indication
     Dosage: DOSAGE FORM:  TABLET (EXTENDED-RELEASE), ROUTE: UNKNOWN
  149. REMICADE [Suspect]
     Active Substance: INFLIXIMAB
     Indication: Rheumatoid arthritis
     Dosage: DOSAGE FORM: POWDER FOR SOLUTION INTRAVENOUS
  150. REMICADE [Suspect]
     Active Substance: INFLIXIMAB
     Indication: Rheumatoid arthritis
     Dosage: DOSAGE FORM: POWDER FOR SOLUTION FOR INJECTION, ROUTE: UNKNOWN
  151. REMICADE [Suspect]
     Active Substance: INFLIXIMAB
     Dosage: DOSAGE FORM: POWDER FOR SOLUTION FOR INJECTION
  152. REMICADE [Suspect]
     Active Substance: INFLIXIMAB
     Dosage: DOSAGE FORM: POWDER FOR SOLUTION FOR INJECTION, ROUTE: INTRAVENOUS DRIP
  153. REMICADE [Suspect]
     Active Substance: INFLIXIMAB
     Dosage: DOSAGE FORM: POWDER FOR SOLUTION FOR INJECTION, ROUTE: UNKNOWN
  154. RESTORIL [Suspect]
     Active Substance: TEMAZEPAM
     Indication: Product used for unknown indication
     Dosage: ROUTE: UNKNOWN
  155. RESTORIL [Suspect]
     Active Substance: TEMAZEPAM
     Dosage: ROUTE: UNKNOWN
  156. RESTORIL [Suspect]
     Active Substance: TEMAZEPAM
     Dosage: ROUTE: UNKNOWN
  157. RESTORIL [Suspect]
     Active Substance: TEMAZEPAM
     Dosage: ROUTE: UNKNOWN
  158. RESTORIL [Suspect]
     Active Substance: TEMAZEPAM
     Dosage: ROUTE: UNKNOWN
  159. RESTORIL [Suspect]
     Active Substance: TEMAZEPAM
     Dosage: ROUTE: UNKNOWN
  160. RESTORIL [Suspect]
     Active Substance: TEMAZEPAM
     Dosage: ROUTE: UNKNOWN, 2 EVERY 1 DAYS
  161. RESTORIL [Suspect]
     Active Substance: TEMAZEPAM
     Dosage: ROUTE: UNKNOWN, 2 EVERY 1 DAYS
  162. RESTORIL [Suspect]
     Active Substance: TEMAZEPAM
     Dosage: ROUTE: UNKNOWN, 2 EVERY 1 DAYS
  163. RITUXIMAB [Suspect]
     Active Substance: RITUXIMAB
     Indication: Rheumatoid arthritis
  164. RITUXIMAB [Suspect]
     Active Substance: RITUXIMAB
  165. RITUXIMAB [Suspect]
     Active Substance: RITUXIMAB
     Indication: Rheumatoid arthritis
     Dosage: DOSAGE FORM: SOLUTION FOR INFUSION
  166. RITUXIMAB [Suspect]
     Active Substance: RITUXIMAB
     Dosage: DOSAGE FORM: SOLUTION FOR INFUSION
  167. RITUXIMAB [Suspect]
     Active Substance: RITUXIMAB
     Dosage: DOSAGE FORM: SOLUTION FOR INFUSION
  168. RITUXIMAB [Suspect]
     Active Substance: RITUXIMAB
     Dosage: DOSAGE FORM: SOLUTION FOR INFUSION
  169. RITUXIMAB [Suspect]
     Active Substance: RITUXIMAB
     Dosage: DOSAGE FORM: SOLUTION FOR INFUSION
  170. RITUXIMAB [Suspect]
     Active Substance: RITUXIMAB
     Dosage: DOSAGE FORM: SOLUTION FOR INFUSION
  171. RITUXIMAB [Suspect]
     Active Substance: RITUXIMAB
     Dosage: DOSAGE FORM: SOLUTION FOR INFUSION
  172. RITUXIMAB [Suspect]
     Active Substance: RITUXIMAB
     Dosage: DOSAGE FORM: SOLUTION FOR INFUSION, ROUTE: UNKNOWN
  173. RITUXIMAB [Suspect]
     Active Substance: RITUXIMAB
     Dosage: DOSAGE FORM: SOLUTION FOR INFUSION
  174. RITUXIMAB [Suspect]
     Active Substance: RITUXIMAB
     Dosage: DOSAGE FORM: SOLUTION FOR INFUSION
  175. RITUXIMAB [Suspect]
     Active Substance: RITUXIMAB
     Dosage: DOSAGE FORM: SOLUTION FOR INFUSION
  176. RITUXIMAB [Suspect]
     Active Substance: RITUXIMAB
     Dosage: DOSAGE FORM: SOLUTION FOR INFUSION
  177. RITUXIMAB [Suspect]
     Active Substance: RITUXIMAB
     Dosage: DOSAGE FORM: SOLUTION FOR INFUSION
  178. RITUXIMAB [Suspect]
     Active Substance: RITUXIMAB
     Dosage: DOSAGE FORM: SOLUTION FOR INFUSION, ROUTE: UNKNOWN
  179. RITUXIMAB [Suspect]
     Active Substance: RITUXIMAB
     Dosage: DOSAGE FORM: SOLUTION FOR INFUSION, ROUTE: UNKNOWN
  180. RITUXIMAB [Suspect]
     Active Substance: RITUXIMAB
     Dosage: DOSAGE FORM: SOLUTION FOR INFUSION, ROUTE: INTRAVENOUS DRIP
  181. SENNOSIDES [Suspect]
     Active Substance: SENNOSIDES
     Indication: Product used for unknown indication
  182. SENNOSIDES [Suspect]
     Active Substance: SENNOSIDES
     Indication: Product used for unknown indication
     Dosage: ROUTE: UNKNOWN
  183. SENNOSIDES [Suspect]
     Active Substance: SENNOSIDES
     Dosage: ROUTE: UNKNOWN
  184. SODIUM PICOSULFATE [Suspect]
     Active Substance: SODIUM PICOSULFATE
     Indication: Product used for unknown indication
     Dosage: ROUTE: UNKNOWN
  185. PANTOPRAZOLE MAGNESIUM [Suspect]
     Active Substance: PANTOPRAZOLE MAGNESIUM
     Indication: Product used for unknown indication
     Dosage: ROUTE: UNKNOWN
  186. PANTOPRAZOLE MAGNESIUM [Suspect]
     Active Substance: PANTOPRAZOLE MAGNESIUM
     Indication: Product used for unknown indication
     Dosage: ROUTE: UNKNOWN
  187. TYLENOL [Suspect]
     Active Substance: ACETAMINOPHEN
     Indication: Product used for unknown indication
     Dosage: ROUTE: UNKNOWN
  188. VENLAFAXINE HYDROCHLORIDE [Suspect]
     Active Substance: VENLAFAXINE HYDROCHLORIDE
     Indication: Product used for unknown indication
     Dosage: ROUTE: UNKNOWN
  189. VENLAFAXINE HYDROCHLORIDE [Suspect]
     Active Substance: VENLAFAXINE HYDROCHLORIDE
     Indication: Product used for unknown indication
     Dosage: DOSAGE FORM: CAPSULE, EXTENDED RELEASE, ROUTE: UNKNOWN
  190. VITAMIN C [Suspect]
     Active Substance: ASCORBIC ACID
     Indication: Product used for unknown indication
     Dosage: ROUTE: UNKNOWN
  191. VITAMIN C [Suspect]
     Active Substance: ASCORBIC ACID
     Dosage: ROUTE: UNKNOWN
  192. VITAMIN C [Suspect]
     Active Substance: ASCORBIC ACID
     Dosage: ROUTE: UNKNOWN
  193. VITAMIN C [Suspect]
     Active Substance: ASCORBIC ACID
     Dosage: ROUTE: UNKNOWN
  194. VITAMIN C [Suspect]
     Active Substance: ASCORBIC ACID
     Indication: Product used for unknown indication
     Dosage: ROUTE: UNKNOWN
  195. WELLBUTRIN XL [Suspect]
     Active Substance: BUPROPION HYDROCHLORIDE
     Indication: Product used for unknown indication
     Dosage: ROUTE: UNKNOWN
  196. WELLBUTRIN XL [Suspect]
     Active Substance: BUPROPION HYDROCHLORIDE
     Indication: Product used for unknown indication
     Dosage: DOSAGE FORM: TABLET (EXTENDED-RELEASE), ROUTE: UNKNOWN

REACTIONS (36)
  - Thrombocytopenia [Fatal]
  - Pain [Fatal]
  - Leukopenia [Fatal]
  - Infection [Fatal]
  - Back pain [Fatal]
  - Hypertension [Fatal]
  - Intentional product misuse [Fatal]
  - Rheumatoid arthritis [Fatal]
  - Drug intolerance [Fatal]
  - Hepatic enzyme increased [Fatal]
  - Rash erythematous [Fatal]
  - Psoriasis [Fatal]
  - Headache [Fatal]
  - Infusion related reaction [Fatal]
  - Food allergy [Fatal]
  - Foetal death [Fatal]
  - Fluid retention [Fatal]
  - Upper respiratory tract infection [Fatal]
  - Nausea [Fatal]
  - Retching [Fatal]
  - Contraindicated product administered [Fatal]
  - Asthma [Fatal]
  - Pyrexia [Fatal]
  - Temperature regulation disorder [Fatal]
  - Constipation [Fatal]
  - Joint swelling [Fatal]
  - Coeliac disease [Fatal]
  - Prescribed overdose [Fatal]
  - Bursitis [Fatal]
  - Drug hypersensitivity [Fatal]
  - Hyperhidrosis [Fatal]
  - Treatment failure [Fatal]
  - Fatigue [Fatal]
  - Hyponatraemia [Fatal]
  - Immunodeficiency [Fatal]
  - Exposure during pregnancy [Fatal]
